FAERS Safety Report 11567439 (Version 1)
Quarter: 2015Q3

REPORT INFORMATION
  Report Type: Report from Study
  Country: BE (occurrence: BE)
  Receive Date: 20150929
  Receipt Date: 20150929
  Transmission Date: 20151125
  Serious: Yes (Hospitalization)
  Sender: FDA-Public Use
  Company Number: BE-ROCHE-ITM201506IM018313

PATIENT
  Age: 73 Year
  Sex: Male

DRUGS (4)
  1. PIRFENIDONE [Suspect]
     Active Substance: PIRFENIDONE
     Indication: IDIOPATHIC PULMONARY FIBROSIS
     Route: 048
     Dates: start: 20150303, end: 20150602
  2. SACCHAROMYCES BOULARDII [Concomitant]
     Active Substance: SACCHAROMYCES CEREVISIAE
     Route: 065
     Dates: start: 20150721
  3. PIRFENIDONE [Suspect]
     Active Substance: PIRFENIDONE
     Route: 048
     Dates: start: 20150602, end: 20150818
  4. PIRFENIDONE [Suspect]
     Active Substance: PIRFENIDONE
     Route: 048
     Dates: start: 20150818

REACTIONS (6)
  - Weight decreased [Recovered/Resolved]
  - Eye oedema [Recovered/Resolved]
  - Rash [Recovered/Resolved]
  - Renal impairment [Recovered/Resolved]
  - Diverticulitis [Recovered/Resolved]
  - Diarrhoea [Recovered/Resolved]

NARRATIVE: CASE EVENT DATE: 20150602
